FAERS Safety Report 25807586 (Version 1)
Quarter: 2025Q3

REPORT INFORMATION
  Report Type: Spontaneous
  Country: SG (occurrence: SG)
  Receive Date: 20250916
  Receipt Date: 20250916
  Transmission Date: 20251020
  Serious: No
  Sender: GILEAD
  Company Number: SG-GILEAD-2025-0728005

PATIENT
  Age: 33 Year
  Sex: Female

DRUGS (3)
  1. LETAIRIS [Suspect]
     Active Substance: AMBRISENTAN
     Indication: Pulmonary hypertension
     Route: 065
  2. SILDENAFIL [Concomitant]
     Active Substance: SILDENAFIL
  3. ILOPROST [Concomitant]
     Active Substance: ILOPROST

REACTIONS (2)
  - Abortion induced [Recovered/Resolved]
  - Maternal exposure during pregnancy [Recovered/Resolved]
